FAERS Safety Report 16809711 (Version 1)
Quarter: 2019Q3

REPORT INFORMATION
  Report Type: Report from Study
  Country: IT (occurrence: IT)
  Receive Date: 20190916
  Receipt Date: 20190916
  Transmission Date: 20191005
  Serious: Yes (Other)
  Sender: FDA-Public Use
  Company Number: IT-MYLANLABS-2019M1085336

PATIENT
  Age: 84 Year
  Sex: Female

DRUGS (5)
  1. SPIRIVA RESPIMAT [Concomitant]
     Active Substance: TIOTROPIUM BROMIDE
     Dosage: 2 DOSAGE FORM
     Route: 055
  2. KADIUR [Interacting]
     Active Substance: BUTHIAZIDE\CANRENOATE POTASSIUM
     Indication: HYPERTENSION
     Dosage: 0.5 MILLIGRAM, QD
     Route: 048
     Dates: start: 20180301, end: 20190328
  3. SERETIDE [Concomitant]
     Active Substance: FLUTICASONE PROPIONATE\SALMETEROL XINAFOATE
     Dosage: 4 DOSAGE FORM
     Route: 055
  4. TEVETENZ 600 MG COMPRESSE RIVESTITE CON FILM [Suspect]
     Active Substance: EPROSARTAN MESYLATE
     Indication: HYPERTENSION
     Dosage: 300 MILLIGRAM, QD
     Route: 048
     Dates: start: 20180301, end: 20190328
  5. ALLOPURINOL. [Concomitant]
     Active Substance: ALLOPURINOL
     Dosage: 150 MILLIGRAM
     Route: 048

REACTIONS (2)
  - Hyperkalaemia [Recovered/Resolved]
  - Drug interaction [Unknown]

NARRATIVE: CASE EVENT DATE: 20190328
